FAERS Safety Report 4535650-5 (Version None)
Quarter: 2004Q4

REPORT INFORMATION
  Report Type: 
  Country: None (occurrence: None)
  Receive Date: 20041222
  Receipt Date: 20041222
  Transmission Date: 20050328
  Serious: Yes (Death, Hospitalization)
  Sender: FDA-Public Use
  Company Number: None

PATIENT
  Age: 60 Year
  Sex: Female
  Weight: 61.2356 kg

DRUGS (2)
  1. ELOXATIN [Suspect]
     Indication: COLON CANCER
     Dosage: 5-3-04 5 -MG UNITS 20 MG 5-11-04 5 MG UNITS 15 MG
     Dates: start: 20031028
  2. ELOXATIN [Suspect]
     Indication: COLON CANCER
     Dosage: 5-3-04 5 -MG UNITS 20 MG 5-11-04 5 MG UNITS 15 MG
     Dates: start: 20040822

REACTIONS (4)
  - BLOOD DISORDER [None]
  - GASTRIC HAEMORRHAGE [None]
  - MOUTH HAEMORRHAGE [None]
  - STOMATITIS [None]
